FAERS Safety Report 5064339-1 (Version None)
Quarter: 2006Q3

REPORT INFORMATION
  Report Type: 
  Country: None (occurrence: None)
  Receive Date: 20060728
  Receipt Date: 20060127
  Transmission Date: 20061208
  Serious: Yes (Other)
  Sender: FDA-Public Use
  Company Number: FR-AVENTIS-200610361FR

PATIENT
  Sex: Female

DRUGS (1)
  1. LOVENOX [Suspect]

REACTIONS (3)
  - ACCIDENTAL EXPOSURE [None]
  - DEVICE FAILURE [None]
  - INJURY [None]
